FAERS Safety Report 5000307-3 (Version None)
Quarter: 2006Q2

REPORT INFORMATION
  Report Type: 
  Country: None (occurrence: None)
  Receive Date: 20060511
  Receipt Date: 20060216
  Transmission Date: 20061013
  Serious: Yes (Death, Hospitalization)
  Sender: FDA-Public Use
  Company Number: US-MERCK-0602USA04672

PATIENT
  Age: 60 Year
  Sex: Male

DRUGS (16)
  1. VIOXX [Suspect]
     Indication: ARTHRITIS
     Route: 048
     Dates: start: 20001109, end: 20031227
  2. VIOXX [Suspect]
     Indication: OSTEOARTHRITIS
     Route: 048
     Dates: start: 20001109, end: 20031227
  3. TOPROL-XL [Concomitant]
     Route: 065
     Dates: start: 20021111
  4. ASPIRIN [Concomitant]
     Route: 065
     Dates: start: 20021111, end: 20031227
  5. LIPITOR [Concomitant]
     Indication: BLOOD CHOLESTEROL INCREASED
     Route: 065
     Dates: start: 20020601, end: 20030301
  6. ZOCOR [Concomitant]
     Indication: BLOOD CHOLESTEROL INCREASED
     Route: 065
     Dates: start: 20030301, end: 20031201
  7. ELAVIL [Concomitant]
     Indication: NEURALGIA
     Route: 065
     Dates: start: 20030321
  8. AMARYL [Concomitant]
     Route: 065
  9. DARVOCET-N 100 [Concomitant]
     Route: 065
  10. SEREVENT [Concomitant]
     Route: 065
  11. GLUCOPHAGE [Concomitant]
     Route: 065
  12. GLYBURIDE [Concomitant]
     Route: 065
  13. COMBIVENT [Concomitant]
     Route: 065
  14. FLOVENT [Concomitant]
     Route: 065
  15. KEFLEX [Concomitant]
     Route: 065
  16. VIAGRA [Concomitant]
     Route: 065

REACTIONS (8)
  - ANGINA PECTORIS [None]
  - BACK DISORDER [None]
  - BLOOD CHOLESTEROL INCREASED [None]
  - CHEST PAIN [None]
  - CHRONIC OBSTRUCTIVE PULMONARY DISEASE [None]
  - DIABETES MELLITUS [None]
  - MYOCARDIAL INFARCTION [None]
  - SPINAL DISORDER [None]
